FAERS Safety Report 22660366 (Version 1)
Quarter: 2023Q2

REPORT INFORMATION
  Report Type: Spontaneous
  Country: PL (occurrence: PL)
  Receive Date: 20230630
  Receipt Date: 20230630
  Transmission Date: 20230722
  Serious: Yes (Other)
  Sender: FDA-Public Use
  Company Number: None

PATIENT
  Age: 82 Year
  Sex: Male
  Weight: 62 kg

DRUGS (1)
  1. PEMETREXED [Suspect]
     Active Substance: PEMETREXED
     Indication: Product used for unknown indication
     Route: 042
     Dates: start: 20221215, end: 20221215

REACTIONS (1)
  - Renal failure [Recovered/Resolved with Sequelae]

NARRATIVE: CASE EVENT DATE: 20230105
